FAERS Safety Report 24435770 (Version 4)
Quarter: 2025Q2

REPORT INFORMATION
  Report Type: Spontaneous
  Country: IT (occurrence: IT)
  Receive Date: 20241015
  Receipt Date: 20250418
  Transmission Date: 20250716
  Serious: Yes (Hospitalization)
  Sender: ROCHE
  Company Number: IT-ROCHE-10000100305

PATIENT
  Age: 0 Hour
  Sex: Male
  Weight: 3.5 kg

DRUGS (1)
  1. OCREVUS [Suspect]
     Active Substance: OCRELIZUMAB
     Indication: Product used for unknown indication
     Route: 064
     Dates: start: 20210615, end: 20231013

REACTIONS (6)
  - Haemolytic anaemia [Recovered/Resolved]
  - Jaundice neonatal [Recovered/Resolved]
  - Foetal exposure during pregnancy [Unknown]
  - B-lymphocyte count decreased [Recovered/Resolved]
  - Rhinovirus infection [Recovered/Resolved]
  - Pyrexia [Recovered/Resolved]

NARRATIVE: CASE EVENT DATE: 20240913
